FAERS Safety Report 7534338-6 (Version None)
Quarter: 2011Q2

REPORT INFORMATION
  Report Type: 
  Country: None (occurrence: None)
  Receive Date: 20110608
  Receipt Date: 20110513
  Transmission Date: 20111010
  Serious: Yes (Disabling)
  Sender: FDA-Public Use
  Company Number: US-AMGEN-USASP2011024838

PATIENT
  Sex: Female

DRUGS (1)
  1. PROLIA [Suspect]
     Indication: PRODUCT USED FOR UNKNOWN INDICATION
     Dosage: UNK
     Dates: start: 20110201

REACTIONS (11)
  - BLOOD GLUCOSE ABNORMAL [None]
  - CYSTITIS [None]
  - ASTHENIA [None]
  - ABDOMINAL DISCOMFORT [None]
  - RETCHING [None]
  - INADEQUATE DIET [None]
  - PAIN [None]
  - HEADACHE [None]
  - ABDOMINAL PAIN UPPER [None]
  - MALAISE [None]
  - ARTHRALGIA [None]
